FAERS Safety Report 12358715 (Version 1)
Quarter: 2016Q2

REPORT INFORMATION
  Report Type: Spontaneous
  Country: US (occurrence: US)
  Receive Date: 20160512
  Receipt Date: 20160512
  Transmission Date: 20160815
  Serious: No
  Sender: FDA-Public Use
  Company Number: US-BAYER-2016-091841

PATIENT
  Age: 78 Year
  Sex: Male
  Weight: 104.76 kg

DRUGS (1)
  1. CHILDREN CLARITIN ALLERGY [Suspect]
     Active Substance: LORATADINE
     Indication: SEASONAL ALLERGY
     Dosage: 2 DF, QD
     Route: 048

REACTIONS (2)
  - Expired product administered [None]
  - Product packaging issue [None]

NARRATIVE: CASE EVENT DATE: 20160510
